FAERS Safety Report 11350143 (Version 2)
Quarter: 2015Q3

REPORT INFORMATION
  Report Type: Spontaneous
  Country: DE (occurrence: DE)
  Receive Date: 20150807
  Receipt Date: 20150923
  Transmission Date: 20151125
  Serious: Yes (Hospitalization)
  Sender: FDA-Public Use
  Company Number: DE-BIOGENIDEC-2015BI108648

PATIENT
  Age: 36 Year
  Sex: Male

DRUGS (2)
  1. TECFIDERA [Suspect]
     Active Substance: DIMETHYL FUMARATE
     Indication: MULTIPLE SCLEROSIS
     Route: 048
     Dates: start: 20140805, end: 201409
  2. TECFIDERA [Suspect]
     Active Substance: DIMETHYL FUMARATE
     Indication: MULTIPLE SCLEROSIS
     Route: 048
     Dates: start: 201409, end: 20150618

REACTIONS (1)
  - Pyrexia [Recovered/Resolved]

NARRATIVE: CASE EVENT DATE: 20150617
